FAERS Safety Report 17063439 (Version 1)
Quarter: 2019Q4

REPORT INFORMATION
  Report Type: Spontaneous
  Country: US (occurrence: US)
  Receive Date: 20191023
  Receipt Date: 20191023
  Transmission Date: 20200122
  Serious: Yes (Life-Threatening, Disabling, Other)
  Sender: FDA-Public Use
  Company Number: None

PATIENT
  Age: 54 Year
  Sex: Female
  Weight: 111.13 kg

DRUGS (1)
  1. LOSARTAN 100MG TABLET [Suspect]
     Active Substance: LOSARTAN
     Indication: HYPERTENSION
     Dates: start: 201505, end: 20190320

REACTIONS (2)
  - Breast cancer female [None]
  - Lymphoma [None]

NARRATIVE: CASE EVENT DATE: 20190319
